FAERS Safety Report 5188590-5 (Version None)
Quarter: 2006Q4

REPORT INFORMATION
  Report Type: 
  Country: None (occurrence: None)
  Receive Date: 20061221
  Receipt Date: 20060602
  Transmission Date: 20070319
  Serious: Yes (Hospitalization, Other)
  Sender: FDA-Public Use
  Company Number: US-ELI_LILLY_AND_COMPANY-US200606001137

PATIENT
  Age: 82 Year
  Sex: Male

DRUGS (4)
  1. HUMULIN 70/30 [Suspect]
     Indication: DIABETES MELLITUS
     Dosage: 100 U, DAILY (1/D)
     Dates: start: 19960101
  2. PERCOCET [Concomitant]
     Indication: PAIN
     Dosage: UNK, UNKNOWN
  3. SOMA [Concomitant]
     Dosage: UNK, UNKNOWN
  4. NEXIUM [Concomitant]
     Dosage: UNK, UNKNOWN

REACTIONS (7)
  - ABDOMINAL OPERATION [None]
  - CEREBROVASCULAR ACCIDENT [None]
  - CORONARY ARTERY DISEASE [None]
  - HIP ARTHROPLASTY [None]
  - KIDNEY INFECTION [None]
  - NEPHROLITHIASIS [None]
  - ROTATOR CUFF REPAIR [None]
